FAERS Safety Report 22588734 (Version 1)
Quarter: 2023Q2

REPORT INFORMATION
  Report Type: Spontaneous
  Country: JP (occurrence: JP)
  Receive Date: 20230612
  Receipt Date: 20230612
  Transmission Date: 20230722
  Serious: Yes (Life-Threatening, Other)
  Sender: FDA-Public Use
  Company Number: JP-BAYER-2023A067341

PATIENT
  Sex: Female
  Weight: 70 kg

DRUGS (2)
  1. YAZ [Suspect]
     Active Substance: DROSPIRENONE\ETHINYL ESTRADIOL
     Indication: Dysmenorrhoea
     Dosage: UNK
     Dates: start: 2022
  2. YAZ [Suspect]
     Active Substance: DROSPIRENONE\ETHINYL ESTRADIOL
     Indication: Menstruation irregular

REACTIONS (4)
  - Cardio-respiratory arrest [Recovering/Resolving]
  - Deep vein thrombosis [None]
  - Pulmonary embolism [None]
  - Pain in extremity [None]

NARRATIVE: CASE EVENT DATE: 20221201
